FAERS Safety Report 6131369-8 (Version None)
Quarter: 2009Q1

REPORT INFORMATION
  Report Type: 
  Country: None (occurrence: None)
  Receive Date: 20090325
  Receipt Date: 20080430
  Transmission Date: 20090719
  Serious: Yes (Life-Threatening, Disabling, Other)
  Sender: FDA-Public Use
  Company Number: US-BRISTOL-MYERS SQUIBB COMPANY-14158935

PATIENT
  Age: 39 Year
  Sex: Male

DRUGS (3)
  1. ERBITUX [Suspect]
     Indication: HEAD AND NECK CANCER
     Route: 042
     Dates: start: 20080414, end: 20080414
  2. RADIATION THERAPY [Concomitant]
  3. AMIFOSTINE [Concomitant]

REACTIONS (1)
  - INFUSION RELATED REACTION [None]
